FAERS Safety Report 8926391 (Version 1)
Quarter: 2012Q4

REPORT INFORMATION
  Report Type: 
  Country: US (occurrence: US)
  Receive Date: 20121127
  Receipt Date: 20121127
  Transmission Date: 20130627
  Serious: Yes (Other)
  Sender: FDA-Public Use
  Company Number: US-PFIZER INC-2004226606US

PATIENT
  Age: 36 Year
  Sex: Female
  Weight: 77.1 kg

DRUGS (11)
  1. XANAX [Suspect]
     Indication: DEPRESSION
     Dosage: 0.5 mg, as needed
     Route: 048
     Dates: start: 2004, end: 20040512
  2. XANAX [Suspect]
     Indication: ANXIETY
  3. IBUPROFEN [Suspect]
     Indication: TENDONITIS
     Dosage: 600 mg and 800 mg, as needed
     Route: 048
     Dates: start: 200401, end: 200405
  4. CELEBREX [Suspect]
     Indication: TENDONITIS
     Dosage: 100 mg, UNK
     Route: 048
     Dates: start: 20040419, end: 2004
  5. CELEBREX [Suspect]
     Dosage: 100 mg, UNK
     Route: 048
     Dates: start: 2004
  6. BEXTRA [Suspect]
     Indication: TENDONITIS
     Dosage: 10 mg, 1x/day
     Route: 048
     Dates: start: 20040223, end: 200404
  7. BEXTRA [Suspect]
     Indication: TENOSYNOVITIS
     Dosage: UNK
     Route: 048
     Dates: start: 20050223
  8. MOTRIN [Suspect]
     Indication: TENDONITIS
     Dosage: 600 mg and 800 mg as needed
     Route: 048
     Dates: start: 200401, end: 200405
  9. CELEXA [Concomitant]
     Dosage: UNK
     Route: 065
  10. PANADEINE CO [Concomitant]
     Dosage: UNK
     Route: 065
  11. HYDROCHLOROTHIAZIDE [Concomitant]
     Dosage: UNK
     Route: 065

REACTIONS (46)
  - Convulsion [Recovered/Resolved]
  - Loss of consciousness [Recovered/Resolved]
  - Hypoglycaemia [Recovered/Resolved]
  - Paranoia [Recovered/Resolved]
  - Fall [Recovered/Resolved]
  - Neck injury [Recovered/Resolved]
  - Back injury [Recovered/Resolved]
  - Joint injury [Recovered/Resolved]
  - Hallucination, auditory [Recovered/Resolved]
  - Tendonitis [Not Recovered/Not Resolved]
  - Nausea [Recovered/Resolved]
  - Vomiting [Recovered/Resolved]
  - Diarrhoea [Recovered/Resolved]
  - Disorientation [Recovered/Resolved]
  - Dizziness [Recovered/Resolved]
  - Clumsiness [Recovered/Resolved]
  - Nervousness [Recovered/Resolved]
  - Weight decreased [Recovered/Resolved]
  - Hyperhidrosis [Not Recovered/Not Resolved]
  - Weight increased [Not Recovered/Not Resolved]
  - Speech disorder [Recovered/Resolved]
  - Scar [Recovered/Resolved]
  - Anxiety [Recovered/Resolved]
  - Tremor [Not Recovered/Not Resolved]
  - Gait disturbance [Recovered/Resolved]
  - Aggression [Unknown]
  - Retching [Recovered/Resolved]
  - Dysgeusia [Recovered/Resolved]
  - Fatigue [Recovered/Resolved]
  - Cold sweat [Recovered/Resolved]
  - Hypophagia [Recovered/Resolved]
  - Migraine [Recovered/Resolved]
  - Chest pain [Recovered/Resolved]
  - Tinnitus [Recovered/Resolved]
  - Post-traumatic stress disorder [Not Recovered/Not Resolved]
  - Feeling abnormal [Not Recovered/Not Resolved]
  - Movement disorder [Not Recovered/Not Resolved]
  - Apathy [Not Recovered/Not Resolved]
  - Insomnia [Not Recovered/Not Resolved]
  - Mood swings [Not Recovered/Not Resolved]
  - Skin disorder [Not Recovered/Not Resolved]
  - Hyperkeratosis [Not Recovered/Not Resolved]
  - Skin exfoliation [Not Recovered/Not Resolved]
  - Skin discolouration [Not Recovered/Not Resolved]
  - Euphoric mood [Unknown]
  - Anger [None]
